FAERS Safety Report 9571392 (Version 1)
Quarter: 2013Q4

REPORT INFORMATION
  Report Type: Spontaneous
  Country: US (occurrence: US)
  Receive Date: 20131001
  Receipt Date: 20131001
  Transmission Date: 20140711
  Serious: Yes (Hospitalization)
  Sender: FDA-Public Use
  Company Number: US-ASTRAZENECA-2013SE71392

PATIENT
  Age: 704 Month
  Sex: Male
  Weight: 121.6 kg

DRUGS (14)
  1. NEXIUM [Suspect]
     Indication: BARRETT^S OESOPHAGUS
     Route: 048
  2. MORPHINE [Suspect]
     Indication: PAIN IN EXTREMITY
     Route: 065
     Dates: end: 201204
  3. PRIMIDONE [Suspect]
     Indication: TREMOR
     Route: 065
  4. GABAPENTIN [Suspect]
     Indication: PAIN IN EXTREMITY
     Route: 065
     Dates: start: 2005
  5. GABAPENTIN [Suspect]
     Indication: PAIN IN EXTREMITY
     Route: 065
     Dates: start: 2005
  6. GAMUNEX [Suspect]
     Indication: CHRONIC INFLAMMATORY DEMYELINATING POLYRADICULONEUROPATHY
     Route: 065
  7. LITHIUM [Suspect]
     Route: 065
  8. LYRICA [Suspect]
     Indication: PAIN IN EXTREMITY
     Route: 065
     Dates: start: 201206
  9. LYRICA [Suspect]
     Indication: PAIN IN EXTREMITY
     Route: 065
     Dates: start: 201206
  10. PRISTIQ [Concomitant]
     Indication: DEPRESSION
  11. PRAVASTATIN [Concomitant]
     Indication: BLOOD CHOLESTEROL ABNORMAL
  12. CENTRUM SILVER [Concomitant]
     Indication: VITAMIN SUPPLEMENTATION
  13. FISH OIL [Concomitant]
  14. CODEINE [Concomitant]

REACTIONS (18)
  - Fall [Unknown]
  - Periorbital contusion [Recovered/Resolved]
  - Concussion [Unknown]
  - Brain oedema [Unknown]
  - Renal failure acute [Recovered/Resolved]
  - Antipsychotic drug level above therapeutic [Unknown]
  - Lower limb fracture [Unknown]
  - Thrombosis [Unknown]
  - Arthropod sting [Unknown]
  - Venom poisoning [Unknown]
  - Dizziness [Unknown]
  - Chronic inflammatory demyelinating polyradiculoneuropathy [Unknown]
  - Tremor [Unknown]
  - Multiple sclerosis [Unknown]
  - Tinnitus [Unknown]
  - Tremor [Unknown]
  - Intentional drug misuse [Unknown]
  - Drug ineffective [Unknown]
